FAERS Safety Report 8166200-2 (Version None)
Quarter: 2012Q1

REPORT INFORMATION
  Report Type: 
  Country: None (occurrence: None)
  Receive Date: 20120227
  Receipt Date: 20110502
  Transmission Date: 20120608
  Serious: No
  Sender: FDA-Public Use
  Company Number: US-MYLANLABS-2011S1009054

PATIENT
  Age: 18 Year
  Sex: Female

DRUGS (3)
  1. AMNESTEEM [Suspect]
     Indication: ACNE CYSTIC
     Dates: start: 20101201, end: 20110201
  2. AMNESTEEM [Suspect]
     Dates: start: 20110201, end: 20110301
  3. AMNESTEEM [Suspect]
     Dates: start: 20101201, end: 20110201

REACTIONS (7)
  - MOOD SWINGS [None]
  - NASAL DRYNESS [None]
  - ANXIETY [None]
  - RASH [None]
  - HAEMATOCHEZIA [None]
  - DEPRESSION [None]
  - STOMATITIS [None]
